FAERS Safety Report 4268811-3 (Version None)
Quarter: 2004Q1

REPORT INFORMATION
  Report Type: 
  Country: None (occurrence: None)
  Receive Date: 20040112
  Receipt Date: 20021002
  Transmission Date: 20041129
  Serious: Yes (Hospitalization, Disabling)
  Sender: FDA-Public Use
  Company Number: WAES 0210DEU00010

PATIENT
  Age: 72 Year
  Sex: Female
  Weight: 72 kg

DRUGS (11)
  1. ENALAPRIL MALEATE [Concomitant]
     Route: 048
  2. FUROSEMIDE SODIUM [Concomitant]
     Route: 048
  3. MAGNESIUM (UNSPECIFIED) [Concomitant]
     Route: 048
  4. MORPHINE SULFATE [Concomitant]
     Route: 048
  5. POLYETHYLENE GLYCOL 3350 AND POTASSIUM CHLORIDE AND SODIUM BICARBONATE [Concomitant]
     Route: 048
  6. VIOXX [Suspect]
     Indication: RHEUMATOID ARTHRITIS
     Route: 048
  7. VIOXX [Suspect]
     Route: 048
  8. VIOXX [Suspect]
     Route: 048
  9. VIOXX [Suspect]
     Route: 048
  10. TAMOXIFEN CITRATE [Concomitant]
     Route: 048
  11. VERAPAMIL [Concomitant]
     Route: 048

REACTIONS (6)
  - MACULAR OEDEMA [None]
  - RETINAL HAEMORRHAGE [None]
  - RETINAL OEDEMA [None]
  - RETINAL VASCULAR DISORDER [None]
  - RETINAL VEIN OCCLUSION [None]
  - VISUAL ACUITY REDUCED [None]
